FAERS Safety Report 8710805 (Version 2)
Quarter: 2013Q1

REPORT INFORMATION
  Report Type: Spontaneous
  Country: BR (occurrence: BR)
  Receive Date: 20120807
  Receipt Date: 20130304
  Transmission Date: 20140127
  Serious: Yes (Other)
  Sender: FDA-Public Use
  Company Number: PHHY2012BR067603

PATIENT
  Sex: Male

DRUGS (5)
  1. DIOVAN AMLO FIX [Suspect]
     Indication: HYPERTENSION
     Dosage: 1 DF (160 MG VALS AND 5 MG AMLO) IN MORNING
     Route: 048
  2. AAS [Concomitant]
     Indication: ANTICOAGULANT THERAPY
     Dosage: 100 MG, DAILY
     Route: 048
     Dates: end: 20130212
  3. CRESTOR [Concomitant]
     Indication: BLOOD TRIGLYCERIDES INCREASED
     Dosage: 100 MG, DAILY
     Route: 048
  4. CILOSTAZOL [Concomitant]
     Indication: ANTICOAGULANT THERAPY
     Dosage: 100 MG, DAILY
     Route: 048
  5. XARELTO [Concomitant]
     Indication: ANTICOAGULANT THERAPY
     Dosage: 15 MG, DAILY
     Route: 048
     Dates: start: 20130220

REACTIONS (3)
  - Arterial disorder [Recovering/Resolving]
  - Arterial occlusive disease [Recovering/Resolving]
  - Device occlusion [Recovering/Resolving]
